FAERS Safety Report 8816153 (Version 2)
Quarter: 2012Q4

REPORT INFORMATION
  Report Type: 
  Country: US (occurrence: US)
  Receive Date: 20120929
  Receipt Date: 20121013
  Transmission Date: 20130627
  Serious: Yes (Hospitalization)
  Sender: FDA-Public Use
  Company Number: US-US-EMD SERONO, INC.-7162972

PATIENT
  Sex: Male

DRUGS (2)
  1. REBIF [Suspect]
     Indication: MULTIPLE SCLEROSIS
     Route: 058
     Dates: start: 20110919
  2. BACLOFEN [Concomitant]
     Indication: MUSCLE SPASTICITY
     Dates: start: 201205

REACTIONS (6)
  - Dehydration [Unknown]
  - Urinary tract infection [Unknown]
  - Pyrexia [Unknown]
  - Convulsion [Recovered/Resolved]
  - Tremor [Unknown]
  - Muscle spasms [Unknown]
